FAERS Safety Report 4889749-4 (Version None)
Quarter: 2006Q1

REPORT INFORMATION
  Report Type: 
  Country: None (occurrence: None)
  Receive Date: 20060124
  Receipt Date: 20060113
  Transmission Date: 20060701
  Serious: Yes (Other)
  Sender: FDA-Public Use
  Company Number: JP-MERCK-0601USA01838

PATIENT
  Age: 76 Year
  Sex: Male

DRUGS (1)
  1. PEPCID [Suspect]
     Indication: GASTRITIS
     Route: 048

REACTIONS (5)
  - BLOOD CREATINE PHOSPHOKINASE INCREASED [None]
  - CONTUSION [None]
  - DIZZINESS [None]
  - FALL [None]
  - THERMAL BURN [None]
